FAERS Safety Report 23910331 (Version 2)
Quarter: 2024Q2

REPORT INFORMATION
  Report Type: Spontaneous
  Country: IT (occurrence: IT)
  Receive Date: 20240528
  Receipt Date: 20240529
  Transmission Date: 20240716
  Serious: Yes (Death)
  Sender: FDA-Public Use
  Company Number: IT-BAYER-2024A077739

PATIENT
  Age: 67 Year
  Sex: Male
  Weight: 90 kg

DRUGS (12)
  1. XARELTO [Interacting]
     Active Substance: RIVAROXABAN
     Indication: Atrial fibrillation
     Dosage: 15 MG, QD
     Route: 048
     Dates: start: 2015, end: 20240401
  2. THIAMINE HYDROCHLORIDE [Suspect]
     Active Substance: THIAMINE HYDROCHLORIDE
     Indication: Percutaneous coronary intervention
     Dosage: 75 MG
     Route: 048
     Dates: start: 202306, end: 20240401
  3. ACETAMINOPHEN\ASPIRIN ALUMINUM\CHLORPHENIRAMINE\ETHENZAMIDE\RIBOFLAVIN [Suspect]
     Active Substance: ACETAMINOPHEN\ASPIRIN ALUMINUM\CHLORPHENIRAMINE\ETHENZAMIDE\RIBOFLAVIN\SULFOGAIACOL
     Indication: Percutaneous coronary intervention
     Dosage: 100 MG
     Route: 048
  4. CANRENOIC ACID [Concomitant]
     Active Substance: CANRENOIC ACID
     Dosage: 100 MG
     Route: 048
  5. LASIX [Concomitant]
     Active Substance: FUROSEMIDE
     Dosage: 25 MG, BID
     Route: 048
  6. ENTRESTO [Concomitant]
     Active Substance: SACUBITRIL\VALSARTAN
     Dosage: 49 MG
     Route: 048
  7. DAPAGLIFLOZIN [Concomitant]
     Active Substance: DAPAGLIFLOZIN
     Dosage: 10 MG, QD
     Route: 048
  8. BISOPROLOL [Concomitant]
     Active Substance: BISOPROLOL\BISOPROLOL FUMARATE
     Dosage: 2.5 MG, QD
     Route: 048
  9. EZEVAST [Concomitant]
     Dosage: 10 MG
     Route: 048
  10. PANTOPRAZOLE SODIUM [Concomitant]
     Active Substance: PANTOPRAZOLE SODIUM
     Dosage: 40 MG
  11. CAFFEINE\DIHYDROCODEINE BITARTRATE [Suspect]
     Active Substance: CAFFEINE\DIHYDROCODEINE BITARTRATE
  12. METHYLEPHEDRINE HYDROCHLORIDE, (+/-)- [Suspect]
     Active Substance: METHYLEPHEDRINE HYDROCHLORIDE, (+/-)-

REACTIONS (2)
  - Cerebral haemorrhage [Fatal]
  - Drug interaction [Fatal]

NARRATIVE: CASE EVENT DATE: 20240401
